FAERS Safety Report 4292660-3 (Version None)
Quarter: 2004Q1

REPORT INFORMATION
  Report Type: 
  Country: None (occurrence: None)
  Receive Date: 20040126
  Receipt Date: 20030908
  Transmission Date: 20041129
  Serious: No
  Sender: FDA-Public Use
  Company Number: USA030946484

PATIENT
  Age: 79 Year
  Sex: Female
  Weight: 53 kg

DRUGS (13)
  1. FORTEO [Suspect]
     Indication: OSTEOPOROSIS
     Dates: start: 20021101
  2. IMDUR [Concomitant]
  3. ACIPHEX [Concomitant]
  4. LASIX [Concomitant]
  5. ALPRAZOLAM [Concomitant]
  6. POTASSIUM [Concomitant]
  7. ASPIRIN [Concomitant]
  8. CALTRATE 600 PLUS [Concomitant]
  9. LACTAID (TILACTASE) [Concomitant]
  10. ACTONEL [Concomitant]
  11. LIPITOR [Concomitant]
  12. ZOCOR [Concomitant]
  13. DIPHENOXYLATE [Concomitant]

REACTIONS (1)
  - ALOPECIA [None]
